FAERS Safety Report 6590736-9 (Version None)
Quarter: 2010Q1

REPORT INFORMATION
  Report Type: 
  Country: None (occurrence: None)
  Receive Date: 20100219
  Receipt Date: 20100210
  Transmission Date: 20100710
  Serious: Yes (Death, Life-Threatening)
  Sender: FDA-Public Use
  Company Number: FR-BRISTOL-MYERS SQUIBB COMPANY-14971972

PATIENT
  Age: 91 Year
  Sex: Male

DRUGS (4)
  1. IRBESARTAN [Suspect]
     Indication: CARDIAC FAILURE
     Dates: start: 20100108, end: 20100111
  2. ALFUZOSIN HCL [Suspect]
     Indication: BENIGN PROSTATIC HYPERPLASIA
     Dates: end: 20100110
  3. IMOVANE [Suspect]
     Indication: INSOMNIA
     Dosage: 1 DF= HALF TABS
     Dates: end: 20100111
  4. FUROSEMIDE [Concomitant]

REACTIONS (3)
  - DEATH [None]
  - HEPATIC ENCEPHALOPATHY [None]
  - HEPATIC FAILURE [None]
